FAERS Safety Report 11497690 (Version 2)
Quarter: 2015Q4

REPORT INFORMATION
  Report Type: Spontaneous
  Country: KE (occurrence: KE)
  Receive Date: 20150911
  Receipt Date: 20151019
  Transmission Date: 20160304
  Serious: No
  Sender: FDA-Public Use
  Company Number: KE-ELI_LILLY_AND_COMPANY-KE201509002531

PATIENT
  Age: 17 Year
  Sex: Male
  Weight: 65 kg

DRUGS (3)
  1. TEGRETOL [Concomitant]
     Active Substance: CARBAMAZEPINE
     Indication: MOOD SWINGS
     Dosage: UNK, UNKNOWN
     Route: 065
  2. ZYPREXA [Suspect]
     Active Substance: OLANZAPINE
     Indication: BIPOLAR I DISORDER
  3. ZYPREXA [Suspect]
     Active Substance: OLANZAPINE
     Indication: SCHIZOPHRENIA
     Dosage: UNK, QD
     Route: 048
     Dates: start: 20150715, end: 20150726

REACTIONS (2)
  - Ear haemorrhage [Recovered/Resolved]
  - Epistaxis [Recovered/Resolved]
